FAERS Safety Report 6969159-6 (Version None)
Quarter: 2010Q3

REPORT INFORMATION
  Report Type: 
  Country: None (occurrence: None)
  Receive Date: 20100907
  Receipt Date: 20100825
  Transmission Date: 20110219
  Serious: Yes (Other)
  Sender: FDA-Public Use
  Company Number: PHHY2010US52908

PATIENT
  Sex: Female

DRUGS (8)
  1. RECLAST [Suspect]
     Indication: OSTEOPENIA
     Dosage: UNK
     Dates: start: 20090501
  2. LIPITOR [Concomitant]
     Indication: BLOOD CHOLESTEROL INCREASED
     Dosage: 20 MG
     Route: 048
  3. ALDACTONE [Concomitant]
     Indication: BLOOD PRESSURE INCREASED
     Dosage: 20 MG, BID
  4. CALCIUM [Concomitant]
     Dosage: 800 MG
  5. CITRIC ACID W/SODIUM CITRATE [Concomitant]
     Dosage: UNK
  6. MULTI-VITAMINS [Concomitant]
  7. ASPIRIN [Concomitant]
     Dosage: 81 MG
  8. CELEBREX [Concomitant]
     Dosage: UNK

REACTIONS (2)
  - LUNG NEOPLASM MALIGNANT [None]
  - MEDIASTINUM NEOPLASM [None]
